FAERS Safety Report 6417149-4 (Version None)
Quarter: 2009Q4

REPORT INFORMATION
  Report Type: 
  Country: None (occurrence: None)
  Receive Date: 20091028
  Receipt Date: 20091023
  Transmission Date: 20100525
  Serious: Yes (Other)
  Sender: FDA-Public Use
  Company Number: JP-WYE-H09819109

PATIENT
  Sex: Male

DRUGS (4)
  1. ZOSYN [Suspect]
     Indication: PNEUMONIA ASPIRATION
     Route: 041
     Dates: start: 20090520, end: 20090526
  2. VANCOMYCIN HYDROCHLORIDE [Concomitant]
     Indication: DRUG USE FOR UNKNOWN INDICATION
     Route: 041
     Dates: start: 20090522, end: 20090529
  3. WARFARIN SODIUM [Interacting]
     Indication: AORTIC ANEURYSM
     Route: 048
     Dates: start: 20090414, end: 20090422
  4. WARFARIN SODIUM [Interacting]
     Indication: VENOUS THROMBOSIS
     Dates: start: 20090423, end: 20090526

REACTIONS (2)
  - INTERNATIONAL NORMALISED RATIO INCREASED [None]
  - POTENTIATING DRUG INTERACTION [None]
